FAERS Safety Report 18384532 (Version 3)
Quarter: 2020Q4

REPORT INFORMATION
  Report Type: Spontaneous
  Country: US (occurrence: US)
  Receive Date: 20201014
  Receipt Date: 20201208
  Transmission Date: 20210114
  Serious: Yes (Hospitalization)
  Sender: FDA-Public Use
  Company Number: US-SEATTLE GENETICS-2020SGN04108

PATIENT
  Sex: Female

DRUGS (1)
  1. TUKYSA [Suspect]
     Active Substance: TUCATINIB
     Indication: BREAST CANCER FEMALE
     Dosage: 3 DF, BID

REACTIONS (7)
  - Fall [Unknown]
  - Memory impairment [Unknown]
  - Diarrhoea [Unknown]
  - Rehabilitation therapy [Unknown]
  - Hepatic steatosis [Unknown]
  - Blood calcium increased [Unknown]
  - Chills [Unknown]
